FAERS Safety Report 20835856 (Version 3)
Quarter: 2022Q2

REPORT INFORMATION
  Report Type: Spontaneous
  Country: US (occurrence: US)
  Receive Date: 20220516
  Receipt Date: 20220621
  Transmission Date: 20220721
  Serious: No
  Sender: FDA-Public Use
  Company Number: US-PFIZER INC-202200629847

PATIENT

DRUGS (1)
  1. SIROLIMUS [Suspect]
     Active Substance: SIROLIMUS
     Dosage: UNK, 2X/DAY

REACTIONS (4)
  - Pain [Unknown]
  - Off label use [Unknown]
  - Product preparation error [Recovered/Resolved]
  - Syringe issue [Unknown]
